FAERS Safety Report 12742587 (Version 5)
Quarter: 2018Q3

REPORT INFORMATION
  Report Type: Spontaneous
  Country: US (occurrence: US)
  Receive Date: 20160914
  Receipt Date: 20180802
  Transmission Date: 20181010
  Serious: Yes (Hospitalization)
  Sender: FDA-Public Use
  Company Number: US-ACTELION-A-NJ2016-142213

PATIENT
  Age: 71 Year
  Sex: Female
  Weight: 112.47 kg

DRUGS (1)
  1. VENTAVIS [Suspect]
     Active Substance: ILOPROST
     Indication: PULMONARY ARTERIAL HYPERTENSION
     Dosage: 5 MCG, 6?9 X DAY
     Route: 055
     Dates: start: 20100415

REACTIONS (6)
  - Catheterisation cardiac [Unknown]
  - Rhabdomyolysis [Unknown]
  - Chest pain [Unknown]
  - Urinary tract infection [Unknown]
  - Fall [Unknown]
  - Headache [Unknown]
